FAERS Safety Report 20152022 (Version 1)
Quarter: 2021Q4

REPORT INFORMATION
  Report Type: Spontaneous
  Country: ES (occurrence: ES)
  Receive Date: 20211206
  Receipt Date: 20211206
  Transmission Date: 20220303
  Serious: Yes (Hospitalization)
  Sender: FDA-Public Use
  Company Number: None

PATIENT
  Age: 36 Year
  Sex: Female

DRUGS (5)
  1. OXALIPLATIN [Suspect]
     Active Substance: OXALIPLATIN
     Indication: Colorectal cancer
     Dosage: 105 MG, CYCLIC
     Route: 042
     Dates: start: 20201019, end: 20210420
  2. PANITUMUMAB [Concomitant]
     Active Substance: PANITUMUMAB
     Indication: Colorectal cancer
     Route: 042
     Dates: start: 20201019, end: 20210420
  3. FOLINATO CALCICO TEVA [Concomitant]
     Indication: Colorectal cancer
     Dates: start: 20201019, end: 20210420
  4. DEXAMETHASONE [Concomitant]
     Active Substance: DEXAMETHASONE
     Indication: Colorectal cancer
     Route: 042
     Dates: start: 20201019, end: 20210420
  5. FLUOROURACIL [Concomitant]
     Active Substance: FLUOROURACIL
     Indication: Colorectal cancer
     Dosage: 496 MG, CYCLIC
     Route: 042
     Dates: start: 20201019, end: 20210420

REACTIONS (3)
  - Thrombocytopenia [Recovering/Resolving]
  - Portal hypertension [Recovering/Resolving]
  - Hyperbilirubinaemia [Recovering/Resolving]

NARRATIVE: CASE EVENT DATE: 20210111
